FAERS Safety Report 4698331-3 (Version None)
Quarter: 2005Q2

REPORT INFORMATION
  Report Type: 
  Country: None (occurrence: None)
  Receive Date: 20050623
  Receipt Date: 20050615
  Transmission Date: 20051028
  Serious: Yes (Life-Threatening)
  Sender: FDA-Public Use
  Company Number: US-BRISTOL-MYERS SQUIBB COMPANY-13005061

PATIENT
  Age: 53 Year
  Sex: Male

DRUGS (2)
  1. CISPLATIN [Suspect]
     Indication: GASTRIC CANCER
     Route: 042
     Dates: start: 20050518, end: 20050518
  2. FLUOROURACIL [Suspect]
     Indication: GASTRIC CANCER
     Route: 042
     Dates: start: 20050518, end: 20050523

REACTIONS (36)
  - ABDOMINAL DISTENSION [None]
  - ABDOMINAL INFECTION [None]
  - ABDOMINAL PAIN [None]
  - ABDOMINAL REBOUND TENDERNESS [None]
  - ACIDOSIS [None]
  - ALPHA HAEMOLYTIC STREPTOCOCCAL INFECTION [None]
  - ASCITES [None]
  - BACTERIAL INFECTION [None]
  - BLOOD ALBUMIN DECREASED [None]
  - BLOOD ALKALINE PHOSPHATASE INCREASED [None]
  - BODY TEMPERATURE DECREASED [None]
  - CACHEXIA [None]
  - DIARRHOEA [None]
  - DISCOMFORT [None]
  - ENTEROCOCCAL INFECTION [None]
  - FLATULENCE [None]
  - GASTRIC PERFORATION [None]
  - GASTROINTESTINAL PERFORATION [None]
  - HAEMATOCRIT DECREASED [None]
  - HAEMOGLOBIN DECREASED [None]
  - HEART RATE INCREASED [None]
  - HYPOTENSION [None]
  - KLEBSIELLA INFECTION [None]
  - METASTATIC NEOPLASM [None]
  - MUCOSAL DRYNESS [None]
  - OEDEMA PERIPHERAL [None]
  - PCO2 INCREASED [None]
  - PO2 DECREASED [None]
  - PROTEIN TOTAL DECREASED [None]
  - PROTHROMBIN TIME PROLONGED [None]
  - RED BLOOD CELL COUNT DECREASED [None]
  - RHONCHI [None]
  - SHIFT TO THE LEFT [None]
  - SHOCK [None]
  - SKIN TURGOR DECREASED [None]
  - WHITE BLOOD CELL COUNT DECREASED [None]
